FAERS Safety Report 20871166 (Version 1)
Quarter: 2022Q2

REPORT INFORMATION
  Report Type: Spontaneous
  Country: US (occurrence: None)
  Receive Date: 20220524
  Receipt Date: 20220524
  Transmission Date: 20220721
  Serious: No
  Sender: FDA-Public Use
  Company Number: None

PATIENT

DRUGS (2)
  1. RETACRIT [Suspect]
     Active Substance: EPOETIN ALFA-EPBX
  2. VASOPRESSIN [Suspect]
     Active Substance: VASOPRESSIN
     Dosage: OTHER STRENGTH : 2,000 UNITS/ML;?
     Route: 042

REACTIONS (3)
  - Product dispensing error [None]
  - Intercepted product administration error [None]
  - Product appearance confusion [None]
